FAERS Safety Report 5150893-8 (Version None)
Quarter: 2006Q4

REPORT INFORMATION
  Report Type: 
  Country: None (occurrence: None)
  Receive Date: 20061108
  Receipt Date: 20061026
  Transmission Date: 20070319
  Serious: Yes (Hospitalization)
  Sender: FDA-Public Use
  Company Number: 2006134093

PATIENT
  Age: 65 Year

DRUGS (5)
  1. PREDNISOLONE [Suspect]
     Indication: ANTIPLATELET THERAPY
     Dosage: 40 MG (40 MG, 1 IN 1 D), ORAL
     Route: 048
  2. ASPIRIN [Suspect]
     Dosage: 75 MG (75 MG, 1 IN 1 D), ORAL
     Route: 048
  3. IBUPROFEN [Suspect]
     Dosage: 1200 MG (400 MG, 3 IN 1 D)
  4. ENOXAPARIN SODIUM [Suspect]
     Dosage: 40 MG (40 MG, 1 IN 1 D), SUBCUTANEOUS
     Route: 058
  5. CLOPIDOGREL [Suspect]
     Dosage: (75 MG), ORAL
     Route: 048

REACTIONS (2)
  - HELICOBACTER INFECTION [None]
  - UPPER GASTROINTESTINAL HAEMORRHAGE [None]
